FAERS Safety Report 7362391-1 (Version None)
Quarter: 2011Q1

REPORT INFORMATION
  Report Type: 
  Country: None (occurrence: None)
  Receive Date: 20110318
  Receipt Date: 20110309
  Transmission Date: 20110831
  Serious: Yes (Hospitalization, Other)
  Sender: FDA-Public Use
  Company Number: CH-ASTRAZENECA-2011SE13676

PATIENT
  Age: 21 Year
  Sex: Female

DRUGS (6)
  1. SEROQUEL XR [Suspect]
     Route: 048
     Dates: start: 20100603, end: 20100615
  2. SEROQUEL XR [Suspect]
     Indication: PERSONALITY DISORDER
     Route: 048
     Dates: end: 20100602
  3. CIPRALEX [Suspect]
     Indication: PERSONALITY DISORDER
     Route: 048
     Dates: end: 20100629
  4. CIPRALEX [Suspect]
     Route: 048
     Dates: start: 20100630, end: 20100708
  5. DEPAKENE [Concomitant]
     Route: 048
     Dates: end: 20100710
  6. TEMESTA [Concomitant]
     Dosage: 1-10 MG DAILY
     Route: 048
     Dates: start: 20100603, end: 20100615

REACTIONS (2)
  - BREAST PAIN [None]
  - GALACTORRHOEA [None]
